FAERS Safety Report 9713747 (Version 1)
Quarter: 2013Q4

REPORT INFORMATION
  Report Type: Spontaneous
  Country: US (occurrence: None)
  Receive Date: 20131125
  Receipt Date: 20131125
  Transmission Date: 20140711
  Serious: Yes (Disabling, Other)
  Sender: FDA-Public Use
  Company Number: None

PATIENT
  Age: 75 Year
  Sex: Female
  Weight: 62.6 kg

DRUGS (7)
  1. LEVOTHYROXINE [Suspect]
     Indication: HYPOTHYROIDISM
     Route: 048
     Dates: start: 20130518, end: 20131110
  2. LEVOTHYROXINE [Suspect]
     Indication: THYROID CANCER
     Route: 048
     Dates: start: 20130518, end: 20131110
  3. JANUMET [Concomitant]
  4. LIPITOR [Concomitant]
  5. PEPCID AC [Concomitant]
  6. IRBESARTAN [Concomitant]
  7. XANAX [Concomitant]

REACTIONS (3)
  - Depression [None]
  - Thyroid cancer recurrent [None]
  - Blood thyroid stimulating hormone increased [None]
